FAERS Safety Report 5241531-4 (Version None)
Quarter: 2007Q1

REPORT INFORMATION
  Report Type: 
  Country: None (occurrence: None)
  Receive Date: 20070220
  Receipt Date: 20070206
  Transmission Date: 20070707
  Serious: Yes (Hospitalization)
  Sender: FDA-Public Use
  Company Number: PL-GLAXOSMITHKLINE-B0458667A

PATIENT
  Age: 36 Year
  Sex: Female

DRUGS (6)
  1. AMOXICILLIN [Suspect]
     Indication: DRUG USE FOR UNKNOWN INDICATION
     Route: 065
  2. AUGMENTIN '125' [Suspect]
     Indication: DRUG USE FOR UNKNOWN INDICATION
     Dates: start: 20060901, end: 20060901
  3. NYSTATIN [Suspect]
  4. ACIDUM BORICUM [Suspect]
  5. UNSPECIFIED DRUG [Suspect]
  6. YASMIN [Concomitant]

REACTIONS (4)
  - DYSPNOEA [None]
  - RASH [None]
  - SYNCOPE [None]
  - VERTIGO [None]
